FAERS Safety Report 9737468 (Version 2)
Quarter: 2013Q4

REPORT INFORMATION
  Report Type: Report from Study
  Country: FR (occurrence: FR)
  Receive Date: 20131206
  Receipt Date: 20131206
  Transmission Date: 20140711
  Serious: Yes (Disabling)
  Sender: FDA-Public Use
  Company Number: FR-ONYX-2013-0165

PATIENT
  Age: 69 Year
  Sex: Female

DRUGS (7)
  1. CARFILZOMIB [Suspect]
     Indication: PLASMA CELL MYELOMA
     Route: 042
  2. CARFILZOMIB [Suspect]
     Route: 042
     Dates: start: 20121211, end: 20130110
  3. MELPHALAN [Concomitant]
     Indication: PLASMA CELL MYELOMA
     Route: 048
     Dates: end: 20121214
  4. MELPHALAN [Concomitant]
     Route: 048
     Dates: start: 20121211, end: 20121214
  5. PREDNISONE [Concomitant]
     Indication: PLASMA CELL MYELOMA
     Route: 048
  6. PREDNISONE [Concomitant]
     Route: 048
     Dates: start: 20121211, end: 20121214
  7. LEVOTHYROXINE [Concomitant]
     Indication: PROPHYLAXIS

REACTIONS (2)
  - Cerebrovascular accident [Not Recovered/Not Resolved]
  - VIth nerve paralysis [Recovering/Resolving]
